FAERS Safety Report 6161994-X (Version None)
Quarter: 2009Q2

REPORT INFORMATION
  Report Type: 
  Country: None (occurrence: None)
  Receive Date: 20090421
  Receipt Date: 20090414
  Transmission Date: 20091009
  Serious: Yes (Hospitalization)
  Sender: FDA-Public Use
  Company Number: FR-MERCK-0903FRA00015

PATIENT
  Age: 74 Year
  Sex: Male

DRUGS (8)
  1. ASPIRIN LYSINE [Concomitant]
     Route: 048
  2. INFLUENZA VIRUS SPLIT VIRION 3V VACCINE INACTIVATED [Suspect]
     Indication: INFLUENZA IMMUNISATION
     Route: 030
     Dates: start: 20081001
  3. ONDANSETRON HYDROCHLORIDE [Suspect]
     Indication: PROPHYLAXIS OF NAUSEA AND VOMITING
     Route: 065
     Dates: start: 20081001
  4. NEBIVOLOL HYDROCHLORIDE [Concomitant]
     Indication: HYPERTENSION
     Route: 065
  5. GLIMEPIRIDE [Concomitant]
     Indication: TYPE 2 DIABETES MELLITUS
     Route: 065
  6. FUROSEMIDE [Concomitant]
     Indication: HYPERTENSION
     Route: 065
  7. GLIMEPIRIDE [Concomitant]
     Route: 065
  8. EMEND [Suspect]
     Indication: PROPHYLAXIS OF NAUSEA AND VOMITING
     Route: 065
     Dates: start: 20081001

REACTIONS (4)
  - EOSINOPHILIA [None]
  - PRURITUS [None]
  - RASH [None]
  - RASH MACULO-PAPULAR [None]
